FAERS Safety Report 8772360 (Version 2)
Quarter: 2013Q4

REPORT INFORMATION
  Report Type: Report from Study
  Country: US (occurrence: US)
  Receive Date: 20120906
  Receipt Date: 20131101
  Transmission Date: 20140711
  Serious: No
  Sender: FDA-Public Use
  Company Number: US-009507513-1208USA011067

PATIENT
  Age: 52 Year
  Sex: Female

DRUGS (1)
  1. MK-4031 [Suspect]
     Dosage: UNK
     Dates: start: 199208

REACTIONS (4)
  - Neuralgia [Unknown]
  - Nerve injury [Unknown]
  - Intervertebral disc degeneration [Unknown]
  - Thyroid disorder [Unknown]
